FAERS Safety Report 22884919 (Version 4)
Quarter: 2023Q4

REPORT INFORMATION
  Report Type: Report from Study
  Country: CN (occurrence: CN)
  Receive Date: 20230830
  Receipt Date: 20231020
  Transmission Date: 20240110
  Serious: Yes (Death, Life-Threatening, Hospitalization)
  Sender: FDA-Public Use
  Company Number: CN-PFIZER INC-PV202300117773

PATIENT
  Sex: Female
  Weight: 70 kg

DRUGS (15)
  1. ELRANATAMAB [Suspect]
     Active Substance: ELRANATAMAB
     Indication: Plasma cell myeloma
     Dosage: 12 MG, STAT (ST)
     Route: 058
     Dates: start: 20220719, end: 20220719
  2. ELRANATAMAB [Suspect]
     Active Substance: ELRANATAMAB
     Dosage: 32 MG, ST
     Route: 058
     Dates: start: 20220722, end: 20220722
  3. ELRANATAMAB [Suspect]
     Active Substance: ELRANATAMAB
     Dosage: 76 MG, QW
     Route: 058
     Dates: start: 20220727, end: 20220922
  4. ELRANATAMAB [Suspect]
     Active Substance: ELRANATAMAB
     Dosage: 76 MG, QW
     Route: 058
     Dates: start: 20221006, end: 20221124
  5. ELRANATAMAB [Suspect]
     Active Substance: ELRANATAMAB
     Dosage: 76 MG, QW
     Route: 058
     Dates: start: 20221208, end: 20221222
  6. ELRANATAMAB [Suspect]
     Active Substance: ELRANATAMAB
     Dosage: 76 MG, QW
     Route: 058
     Dates: start: 20230223, end: 20230420
  7. ELRANATAMAB [Suspect]
     Active Substance: ELRANATAMAB
     Dosage: 44 MG, QW
     Route: 058
     Dates: start: 20230504, end: 20230518
  8. ELRANATAMAB [Suspect]
     Active Substance: ELRANATAMAB
     Dosage: 32 MG, Q2W
     Route: 058
     Dates: start: 20230602, end: 20230628
  9. CALCIUM CARBONATE\CHOLECALCIFEROL [Concomitant]
     Active Substance: CALCIUM CARBONATE\CHOLECALCIFEROL
     Indication: Osteoporosis
     Dosage: 1 TABLET, QD
     Route: 048
     Dates: start: 20220825
  10. LEVOTHYROXINE SODIUM [Concomitant]
     Active Substance: LEVOTHYROXINE SODIUM
     Indication: Hypothyroidism
     Dosage: 100 UG, QD
     Route: 048
     Dates: start: 2022
  11. SHENG XUE XIAO BAN [Concomitant]
     Indication: Platelet count decreased
     Dosage: 4 CAPSULES, TID, SHENGXUEXIAOBANJIAONANG
     Route: 048
     Dates: start: 20230217
  12. LEUCOGEN [Concomitant]
     Active Substance: LEUCOGEN
     Indication: White blood cell count decreased
     Dosage: 20 MG, TID
     Route: 048
     Dates: start: 20221103
  13. LEUCOGEN [Concomitant]
     Active Substance: LEUCOGEN
     Indication: Neutrophil count decreased
  14. TRAMADOL [Concomitant]
     Active Substance: TRAMADOL\TRAMADOL HYDROCHLORIDE
     Indication: Arthralgia
     Dosage: 100 MG, QN (EVERY NIGHT), SUSTAINED RELEASE CAPSULES
     Route: 048
     Dates: start: 20230420
  15. GLYCERIN [Concomitant]
     Active Substance: GLYCERIN
     Indication: Constipation
     Dosage: 1 BOTTLE, PRN, GLYCEROL ENEMA
     Dates: start: 20230518

REACTIONS (1)
  - Pneumonia [Fatal]

NARRATIVE: CASE EVENT DATE: 20230525
